FAERS Safety Report 14530818 (Version 1)
Quarter: 2018Q1

REPORT INFORMATION
  Report Type: Spontaneous
  Country: GB (occurrence: GB)
  Receive Date: 20180214
  Receipt Date: 20180214
  Transmission Date: 20180509
  Serious: Yes (Other)
  Sender: FDA-Public Use
  Company Number: GB-ABBVIE-18P-167-2254212-00

PATIENT
  Sex: Male

DRUGS (2)
  1. ENOXAPARIN SODIUM. [Suspect]
     Active Substance: ENOXAPARIN SODIUM
     Indication: MATERNAL EXPOSURE TIMING UNSPECIFIED
     Route: 064
  2. VALPROATE SODIUM. [Suspect]
     Active Substance: VALPROATE SODIUM
     Indication: MATERNAL EXPOSURE TIMING UNSPECIFIED
     Route: 064

REACTIONS (9)
  - Hernia [Unknown]
  - Foetal exposure during pregnancy [Unknown]
  - Abnormal behaviour [Unknown]
  - Disturbance in social behaviour [Unknown]
  - Disability [Unknown]
  - Attention deficit/hyperactivity disorder [Unknown]
  - Learning disorder [Unknown]
  - Cardiac murmur [Unknown]
  - Emotional distress [Unknown]
